FAERS Safety Report 6434743-5 (Version None)
Quarter: 2009Q4

REPORT INFORMATION
  Report Type: 
  Country: None (occurrence: None)
  Receive Date: 20091109
  Receipt Date: 20091109
  Transmission Date: 20100525
  Serious: Yes (Hospitalization)
  Sender: FDA-Public Use
  Company Number: None

PATIENT
  Age: 30 Year
  Sex: Male
  Weight: 86 kg

DRUGS (2)
  1. TAMIFLU [Suspect]
     Indication: INFLUENZA
  2. AZITHROMYCIN [Suspect]

REACTIONS (1)
  - OEDEMA PERIPHERAL [None]
